FAERS Safety Report 4263792-0 (Version None)
Quarter: 2004Q1

REPORT INFORMATION
  Report Type: 
  Country: None (occurrence: None)
  Receive Date: 20040102
  Receipt Date: 20031218
  Transmission Date: 20041129
  Serious: Yes (Other)
  Sender: FDA-Public Use
  Company Number: US_031299568

PATIENT
  Age: 9 Year
  Sex: Male

DRUGS (2)
  1. STRATTERA [Suspect]
     Indication: ATTENTION DEFICIT/HYPERACTIVITY DISORDER
     Dates: start: 20030201, end: 20030201
  2. ADDERALL 10 [Concomitant]

REACTIONS (2)
  - GRAND MAL CONVULSION [None]
  - PSYCHOMOTOR HYPERACTIVITY [None]
